FAERS Safety Report 6218740-0 (Version None)
Quarter: 2009Q2

REPORT INFORMATION
  Report Type: 
  Country: None (occurrence: None)
  Receive Date: 20090608
  Receipt Date: 20090601
  Transmission Date: 20091009
  Serious: Yes (Hospitalization)
  Sender: FDA-Public Use
  Company Number: AU-AMGEN-US349299

PATIENT
  Sex: Male

DRUGS (3)
  1. PANITUMUMAB [Suspect]
     Indication: SQUAMOUS CELL CARCINOMA
     Route: 042
     Dates: start: 20081208
  2. FLUOROURACIL [Concomitant]
     Route: 042
  3. CISPLATIN [Concomitant]
     Route: 042

REACTIONS (1)
  - ACUTE MYOCARDIAL INFARCTION [None]
